FAERS Safety Report 24647893 (Version 1)
Quarter: 2024Q4

REPORT INFORMATION
  Report Type: Spontaneous
  Country: US (occurrence: US)
  Receive Date: 20241121
  Receipt Date: 20241121
  Transmission Date: 20250115
  Serious: Yes (Other)
  Sender: DR REDDYS
  Company Number: US-DRL-USA-LIT/USA/24/0017059

PATIENT
  Age: 67 Year
  Sex: Male

DRUGS (2)
  1. PREGABALIN [Suspect]
     Active Substance: PREGABALIN
     Indication: Procedural pain
  2. GABAPENTIN [Concomitant]
     Active Substance: GABAPENTIN
     Indication: Procedural pain

REACTIONS (1)
  - Drug ineffective [Unknown]
